FAERS Safety Report 16812977 (Version 1)
Quarter: 2019Q3

REPORT INFORMATION
  Report Type: Other
  Country: US (occurrence: US)
  Receive Date: 20190916
  Receipt Date: 20190916
  Transmission Date: 20191005
  Serious: No
  Sender: FDA-Public Use
  Company Number: US-LEADIANT BIOSCIENCES INC-2018STPI000655

PATIENT
  Sex: Female

DRUGS (6)
  1. KEPPRA [Concomitant]
     Active Substance: LEVETIRACETAM
     Dosage: 500 MG, UNK
  2. TYLENOL [Concomitant]
     Active Substance: ACETAMINOPHEN
     Dosage: 325 MG, UNK
  3. ZOFRAN [Concomitant]
     Active Substance: ONDANSETRON HYDROCHLORIDE
     Dosage: 4 MG, UNK
  4. VINCASAR [Concomitant]
     Dosage: 1 MG/ML, UNK
  5. MATULANE [Suspect]
     Active Substance: PROCARBAZINE HYDROCHLORIDE
     Indication: BRAIN NEOPLASM MALIGNANT
     Dosage: 50 MG, DAYS 8 TO 21 OF 29 DAY CYCLE
     Route: 048
     Dates: start: 20180601
  6. GLEOSTINE [Concomitant]
     Active Substance: LOMUSTINE
     Dosage: 100 MG, UNK

REACTIONS (1)
  - Vomiting [Not Recovered/Not Resolved]
